FAERS Safety Report 24531687 (Version 1)
Quarter: 2024Q4

REPORT INFORMATION
  Report Type: Report from Study
  Country: US (occurrence: US)
  Receive Date: 20241022
  Receipt Date: 20241022
  Transmission Date: 20250114
  Serious: No
  Sender: ROCHE
  Company Number: US-ROCHE-3340898

PATIENT
  Age: 13 Year
  Sex: Male

DRUGS (10)
  1. PULMOZYME [Suspect]
     Active Substance: DORNASE ALFA
     Indication: Respiratory tract malformation
     Dosage: VIA NEBULIZER 1XDAILY?30 X 2.5 ML AMPULES?END DATE: 24-APR-2025
     Route: 065
     Dates: start: 20240424
  2. PULMOZYME [Suspect]
     Active Substance: DORNASE ALFA
     Indication: Asthma
  3. PULMOZYME [Suspect]
     Active Substance: DORNASE ALFA
     Indication: Infection
  4. PULMOZYME [Suspect]
     Active Substance: DORNASE ALFA
     Indication: Heterotaxia
  5. PULMOZYME [Suspect]
     Active Substance: DORNASE ALFA
     Indication: Acute sinusitis
  6. PULMOZYME [Suspect]
     Active Substance: DORNASE ALFA
     Indication: Pneumonia
  7. PULMOZYME [Suspect]
     Active Substance: DORNASE ALFA
     Indication: Primary ciliary dyskinesia
  8. SODIUM CHLORIDE [Concomitant]
     Active Substance: SODIUM CHLORIDE
     Dosage: 7 % BIO
  9. BUDESONIDE [Concomitant]
     Active Substance: BUDESONIDE
     Dosage: 0.5 MG BID
  10. DULERA [Concomitant]
     Active Substance: FORMOTEROL FUMARATE DIHYDRATE\MOMETASONE FUROATE
     Dosage: 200 MG BID

REACTIONS (2)
  - Off label use [Unknown]
  - No adverse event [Unknown]
